FAERS Safety Report 5530259-9 (Version None)
Quarter: 2007Q4

REPORT INFORMATION
  Report Type: 
  Country: None (occurrence: None)
  Receive Date: 20071127
  Receipt Date: 20071112
  Transmission Date: 20080405
  Serious: Yes (Hospitalization)
  Sender: FDA-Public Use
  Company Number: 2007S1011789

PATIENT
  Age: 43 Year
  Sex: Male

DRUGS (1)
  1. ALLOPURINOL [Suspect]

REACTIONS (2)
  - RENAL FAILURE ACUTE [None]
  - TUMOUR LYSIS SYNDROME [None]
